FAERS Safety Report 4684092-0 (Version None)
Quarter: 2005Q2

REPORT INFORMATION
  Report Type: 
  Country: None (occurrence: None)
  Receive Date: 20050607
  Receipt Date: 20050531
  Transmission Date: 20051028
  Serious: Yes (Hospitalization)
  Sender: FDA-Public Use
  Company Number: GXKR2005GB01156

PATIENT
  Age: 66 Year
  Sex: Female

DRUGS (7)
  1. RIFAMPICIN [Suspect]
     Indication: SEPSIS
     Dosage: 600 MG
     Route: 042
     Dates: start: 20041120, end: 20041120
  2. ORAMORPH SR [Concomitant]
     Indication: CANCER PAIN
     Dosage: 10 MG, PRN
     Route: 048
  3. DIAZEPAM [Concomitant]
     Indication: ANXIETY
     Dosage: 2 MG, TDS PRN
     Route: 048
  4. VENLAFAXINE HCL [Concomitant]
     Indication: DEPRESSION
     Dosage: 37.5 MG, BID
     Route: 048
  5. PROPRANOLOL [Concomitant]
     Indication: ANXIETY
     Dosage: 10 MG, QD
     Route: 048
  6. IBANDRONIC ACID [Concomitant]
     Indication: NEOPLASM MALIGNANT
     Dosage: 50 MG, QD
     Route: 048
  7. METOCLOPRAMIDE [Concomitant]
     Indication: MALAISE
     Dosage: 10 MG, TID
     Route: 048

REACTIONS (4)
  - BLOOD PRESSURE INCREASED [None]
  - DYSPNOEA [None]
  - NAUSEA [None]
  - VOMITING [None]
